FAERS Safety Report 6377247-0 (Version None)
Quarter: 2009Q3

REPORT INFORMATION
  Report Type: 
  Country: None (occurrence: None)
  Receive Date: 20090925
  Receipt Date: 20090918
  Transmission Date: 20100115
  Serious: Yes (Other)
  Sender: FDA-Public Use
  Company Number: B0594013A

PATIENT
  Age: 14 Year
  Sex: Male

DRUGS (2)
  1. RELENZA [Suspect]
     Indication: INFLUENZA
     Dosage: 10MG TWICE PER DAY
     Route: 055
     Dates: start: 20090916, end: 20090917
  2. ACETAMINOPHEN [Suspect]
     Indication: DRUG USE FOR UNKNOWN INDICATION
     Route: 065
     Dates: start: 20090916, end: 20090917

REACTIONS (2)
  - HALLUCINATION [None]
  - HALLUCINATION, AUDITORY [None]
